FAERS Safety Report 4525521-2 (Version None)
Quarter: 2004Q4

REPORT INFORMATION
  Report Type: 
  Country: None (occurrence: None)
  Receive Date: 20041207
  Receipt Date: 20041122
  Transmission Date: 20050328
  Serious: Yes (Hospitalization, Other)
  Sender: FDA-Public Use
  Company Number: WAES 0411GBR00082

PATIENT
  Age: 62 Year
  Sex: Female

DRUGS (8)
  1. COZAAR [Suspect]
     Indication: CARDIAC FAILURE CONGESTIVE
     Dosage: PO; SEE IMAGE
     Route: 048
     Dates: start: 20040601, end: 20040802
  2. COZAAR [Suspect]
     Indication: CARDIAC FAILURE CONGESTIVE
     Dosage: PO; SEE IMAGE
     Route: 048
     Dates: start: 20040101, end: 20041104
  3. COZAAR [Suspect]
     Indication: CARDIAC FAILURE CONGESTIVE
     Dosage: PO; SEE IMAGE
     Route: 048
     Dates: start: 20041105
  4. ASPIRIN [Concomitant]
  5. CARVEDILOL [Concomitant]
  6. FUROSEMIDE [Concomitant]
  7. NICORANDIL [Concomitant]
  8. PRAVASTATIN [Concomitant]

REACTIONS (9)
  - BLOOD CREATININE INCREASED [None]
  - BLOOD UREA INCREASED [None]
  - CELLULITIS [None]
  - DIABETES MELLITUS INADEQUATE CONTROL [None]
  - HYPOGLYCAEMIA [None]
  - NAUSEA [None]
  - OEDEMA PERIPHERAL [None]
  - SEPSIS [None]
  - VOMITING [None]
